FAERS Safety Report 6505306-8 (Version None)
Quarter: 2009Q4

REPORT INFORMATION
  Report Type: 
  Country: None (occurrence: None)
  Receive Date: 20091201
  Receipt Date: 20090817
  Transmission Date: 20100525
  Serious: Yes (Hospitalization)
  Sender: FDA-Public Use
  Company Number: 2009SP021058

PATIENT
  Age: 43 Year
  Sex: Female
  Weight: 95.709 kg

DRUGS (5)
  1. NUVARING [Suspect]
     Indication: CONTRACEPTION
     Dates: start: 20070501, end: 20070701
  2. NUVARING [Suspect]
     Indication: PREMENSTRUAL SYNDROME
     Dates: start: 20070501, end: 20070701
  3. NUVARING [Suspect]
     Indication: CONTRACEPTION
     Dates: start: 20030101
  4. NUVARING [Suspect]
     Indication: PREMENSTRUAL SYNDROME
     Dates: start: 20030101
  5. BENADRYL [Concomitant]

REACTIONS (2)
  - DEEP VEIN THROMBOSIS [None]
  - PULMONARY EMBOLISM [None]
